FAERS Safety Report 12717788 (Version 1)
Quarter: 2016Q3

REPORT INFORMATION
  Report Type: Report from Study
  Country: US (occurrence: US)
  Receive Date: 20160906
  Receipt Date: 20160906
  Transmission Date: 20161109
  Serious: Yes (Hospitalization)
  Sender: FDA-Public Use
  Company Number: US-PFIZER INC-2016405200

PATIENT
  Age: 74 Year
  Sex: Male

DRUGS (3)
  1. CAPECITABINE. [Suspect]
     Active Substance: CAPECITABINE
     Indication: PANCREATIC CARCINOMA STAGE IV
     Dosage: 2500 MG, 1X/DAY
     Route: 048
     Dates: start: 20150108, end: 20160712
  2. RUXOLITINIB [Suspect]
     Active Substance: RUXOLITINIB
     Indication: PANCREATIC CARCINOMA STAGE IV
     Dosage: 30 MG, 1X/DAY
     Route: 048
     Dates: start: 20150108, end: 20160713
  3. GEMCITABINE HYDROCHLORIDE. [Suspect]
     Active Substance: GEMCITABINE HYDROCHLORIDE
     Indication: PANCREATIC CARCINOMA STAGE IV
     Dosage: 1000 MG/M2, WEEKLY
     Route: 042
     Dates: start: 20160719, end: 20160720

REACTIONS (1)
  - Colitis [Recovered/Resolved]

NARRATIVE: CASE EVENT DATE: 20160719
